FAERS Safety Report 6696003-7 (Version None)
Quarter: 2010Q2

REPORT INFORMATION
  Report Type: 
  Country: None (occurrence: None)
  Receive Date: 20100426
  Receipt Date: 20100421
  Transmission Date: 20101027
  Serious: Yes (Hospitalization)
  Sender: FDA-Public Use
  Company Number: FR-ASTRAZENECA-2010SE18066

PATIENT
  Age: 19493 Day
  Sex: Female

DRUGS (3)
  1. XYLOCAINE [Suspect]
     Indication: MESOTHERAPY
     Dates: start: 20091126, end: 20091126
  2. MOBIC [Suspect]
     Indication: MESOTHERAPY
     Dosage: 15 MG/ 1.5 ML
     Dates: start: 20091126, end: 20091126
  3. SURGESTONE [Concomitant]

REACTIONS (1)
  - ANAPHYLACTIC SHOCK [None]
